FAERS Safety Report 5012168-7 (Version None)
Quarter: 2006Q2

REPORT INFORMATION
  Report Type: 
  Country: None (occurrence: None)
  Receive Date: 20060526
  Receipt Date: 20060517
  Transmission Date: 20061013
  Serious: Yes (Hospitalization)
  Sender: FDA-Public Use
  Company Number: JP-ABBOTT-06P-087-0333434-00

PATIENT
  Age: 1 Year
  Sex: Male

DRUGS (8)
  1. CEFZON [Suspect]
     Indication: PHARYNGITIS
     Route: 048
     Dates: start: 20060507, end: 20060510
  2. ZITHROMAX [Suspect]
     Indication: PHARYNGITIS
     Route: 048
     Dates: start: 20060502, end: 20060504
  3. PARACETAMOL [Concomitant]
     Indication: DRUG USE FOR UNKNOWN INDICATION
     Route: 048
     Dates: start: 20060502, end: 20060510
  4. ACETYLCYSTEINE [Concomitant]
     Indication: DRUG USE FOR UNKNOWN INDICATION
  5. TIPEPIDINE HIBENZATE [Concomitant]
     Indication: DRUG USE FOR UNKNOWN INDICATION
  6. MEQUITAZINE [Concomitant]
     Indication: DRUG USE FOR UNKNOWN INDICATION
  7. STREPTOCOCCUS FAECALIS [Concomitant]
     Indication: DRUG USE FOR UNKNOWN INDICATION
  8. TULOBUTEROL HYDROCHLORIDE [Concomitant]
     Indication: DRUG USE FOR UNKNOWN INDICATION

REACTIONS (4)
  - ASTHENIA [None]
  - HAEMOLYTIC ANAEMIA [None]
  - OCULAR ICTERUS [None]
  - PALLOR [None]
